FAERS Safety Report 9178441 (Version 1)
Quarter: 2012Q4

REPORT INFORMATION
  Report Type: 
  Country: BR (occurrence: BR)
  Receive Date: 20121029
  Receipt Date: 20121029
  Transmission Date: 20130627
  Serious: Yes (Death, Hospitalization, Other)
  Sender: FDA-Public Use
  Company Number: BR-PFIZER INC-2012265354

PATIENT
  Age: 69 Year
  Sex: Male

DRUGS (2)
  1. XALACOM [Suspect]
     Dosage: Unk
     Dates: start: 201107
  2. XALATAN [Suspect]
     Dosage: Unk

REACTIONS (4)
  - Respiratory failure [Fatal]
  - Cardiac arrest [Fatal]
  - Emphysema [Fatal]
  - Blood pressure abnormal [Unknown]
